FAERS Safety Report 17839370 (Version 1)
Quarter: 2020Q2

REPORT INFORMATION
  Report Type: Spontaneous
  Country: US (occurrence: US)
  Receive Date: 20200528
  Receipt Date: 20200528
  Transmission Date: 20200714
  Serious: No
  Sender: FDA-Public Use
  Company Number: None

PATIENT
  Age: 67 Year
  Sex: Male
  Weight: 173 kg

DRUGS (2)
  1. METOLAZONE (METOLAZONE 2.5MG TAB) [Suspect]
     Active Substance: METOLAZONE
     Indication: FLUID OVERLOAD
     Route: 048
     Dates: start: 20200204, end: 20200318
  2. METOLAZONE (METOLAZONE 2.5MG TAB) [Suspect]
     Active Substance: METOLAZONE
     Indication: LYMPHOEDEMA
     Route: 048
     Dates: start: 20200204, end: 20200318

REACTIONS (2)
  - Acute kidney injury [None]
  - Polyuria [None]

NARRATIVE: CASE EVENT DATE: 20200318
